FAERS Safety Report 11130653 (Version 1)
Quarter: 2015Q2

REPORT INFORMATION
  Report Type: Spontaneous
  Country: US (occurrence: None)
  Receive Date: 20150521
  Receipt Date: 20150521
  Transmission Date: 20150821
  Serious: No
  Sender: FDA-Public Use
  Company Number: None

PATIENT
  Age: 19 Year
  Sex: Female
  Weight: 73.48 kg

DRUGS (6)
  1. CALCIUM 600 + D3 [Concomitant]
  2. ONE A DAY WOMANS [Concomitant]
  3. BIOTIN 5000 MG SKIN, HAIR [Concomitant]
  4. LITHIUM CARBONATE 450 MG ROXANE LABS [Suspect]
     Active Substance: LITHIUM CARBONATE
     Indication: BIPOLAR I DISORDER
     Dosage: 450 MG., 1 TABLET, BEDTIME, BY MOUTH
     Route: 048
     Dates: start: 1980
  5. LISINIPRIL 5MG [Concomitant]
     Active Substance: LISINOPRIL
  6. BAYER ASPRIN [Concomitant]

REACTIONS (1)
  - Alopecia [None]
